FAERS Safety Report 9970462 (Version 1)
Quarter: 2014Q1

REPORT INFORMATION
  Report Type: Spontaneous
  Country: US (occurrence: None)
  Receive Date: 20140305
  Receipt Date: 20140305
  Transmission Date: 20141002
  Serious: Yes (Life-Threatening, Hospitalization)
  Sender: FDA-Public Use
  Company Number: None

PATIENT
  Age: 59 Year
  Sex: Female
  Weight: 70.31 kg

DRUGS (2)
  1. LOSARTAN [Suspect]
     Indication: BLOOD PRESSURE MANAGEMENT
     Route: 048
     Dates: start: 20130101, end: 20140301
  2. HYDRALAZINE [Suspect]
     Route: 048

REACTIONS (8)
  - Scar [None]
  - Condition aggravated [None]
  - Pain [None]
  - Pruritus [None]
  - Rash [None]
  - Hyperaesthesia [None]
  - Dyspnoea [None]
  - Drug hypersensitivity [None]
